FAERS Safety Report 6267440-X (Version None)
Quarter: 2009Q3

REPORT INFORMATION
  Report Type: 
  Country: None (occurrence: None)
  Receive Date: 20090714
  Receipt Date: 20090703
  Transmission Date: 20100115
  Serious: Yes (Other)
  Sender: FDA-Public Use
  Company Number: FR-AVENTIS-200912477FR

PATIENT
  Sex: Female

DRUGS (4)
  1. TAXOTERE [Suspect]
     Route: 042
  2. FLUOROURACIL [Concomitant]
     Route: 042
  3. EPIRUBICIN [Concomitant]
  4. CYCLOPHOSPHAMIDE [Concomitant]

REACTIONS (3)
  - NEUTROPENIA [None]
  - PRODUCT QUALITY ISSUE [None]
  - THERMAL BURN [None]
